FAERS Safety Report 10522921 (Version 1)
Quarter: 2014Q4

REPORT INFORMATION
  Report Type: Spontaneous
  Country: IT (occurrence: None)
  Receive Date: 20141010
  Receipt Date: 20141010
  Transmission Date: 20150528
  Serious: Yes (Death)
  Sender: FDA-Public Use
  Company Number: B1037160A

PATIENT

DRUGS (2)
  1. ENTECAVIR. [Suspect]
     Active Substance: ENTECAVIR
     Dosage: UNKNOWN
  2. LAMIVUDINE (LAMIVUDINE) UNKNOWN [Suspect]
     Active Substance: LAMIVUDINE
     Indication: PROPHYLAXIS
     Dosage: UNKNOWN

REACTIONS (2)
  - Acute hepatic failure [None]
  - Hepatitis B [None]
